FAERS Safety Report 7309132-1 (Version None)
Quarter: 2011Q1

REPORT INFORMATION
  Report Type: 
  Country: None (occurrence: None)
  Receive Date: 20110223
  Receipt Date: 20110215
  Transmission Date: 20110831
  Serious: Yes (Life-Threatening, Hospitalization, Other)
  Sender: FDA-Public Use
  Company Number: PHHY2010GB89850

PATIENT
  Age: 80 Year
  Sex: Male

DRUGS (5)
  1. ATENOLOL [Concomitant]
     Dosage: 50 MG, UNK
     Route: 048
  2. MICONAZOLE [Interacting]
     Indication: FUNGAL INFECTION
     Dosage: UNK
     Route: 003
  3. DILTIAZEM [Concomitant]
     Dosage: 400 MG, UNK
     Route: 048
  4. ISOSORBIDE MONONITRATE [Concomitant]
     Dosage: 20 MG, UNK
     Route: 048
  5. WARFARIN [Suspect]
     Indication: ATRIAL FIBRILLATION
     Dosage: 6 MG, UNK
     Route: 048

REACTIONS (3)
  - DRUG INTERACTION [None]
  - CEREBROVASCULAR ACCIDENT [None]
  - INTERNATIONAL NORMALISED RATIO INCREASED [None]
